FAERS Safety Report 7032879-1 (Version None)
Quarter: 2010Q4

REPORT INFORMATION
  Report Type: 
  Country: None (occurrence: None)
  Receive Date: 20101007
  Receipt Date: 20100930
  Transmission Date: 20110411
  Serious: Yes (Hospitalization)
  Sender: FDA-Public Use
  Company Number: BR-ROCHE-730725

PATIENT
  Sex: Female
  Weight: 100 kg

DRUGS (14)
  1. TOCILIZUMAB [Suspect]
     Indication: RHEUMATOID ARTHRITIS
     Dosage: FORM:INFUSION, ROUTE:ENDOVENOUS
     Route: 042
     Dates: start: 20090924
  2. TOCILIZUMAB [Suspect]
     Route: 042
  3. MOTILIUM [Concomitant]
  4. NEXIUM [Concomitant]
  5. VIVACOR [Concomitant]
  6. MACRODANTINA [Concomitant]
  7. LYRICA [Concomitant]
  8. PREDSIM [Concomitant]
  9. NAPRIX [Concomitant]
  10. CITONEURIN [Concomitant]
  11. METHOTREXATE [Concomitant]
  12. VILDAGLIPTIN [Concomitant]
     Dosage: DRUG REPORTED AS GALVUS MET
  13. METFORMIN [Concomitant]
     Dosage: DRUG REPORTED AS GALVUS MET
  14. LANTUS [Concomitant]

REACTIONS (4)
  - ARTHROPATHY [None]
  - HERPES VIRUS INFECTION [None]
  - IMMUNODEFICIENCY [None]
  - LOWER RESPIRATORY TRACT INFECTION [None]
